FAERS Safety Report 12809122 (Version 1)
Quarter: 2016Q4

REPORT INFORMATION
  Report Type: Spontaneous
  Country: FR (occurrence: FR)
  Receive Date: 20161004
  Receipt Date: 20161004
  Transmission Date: 20170207
  Serious: Yes (Hospitalization, Other)
  Sender: FDA-Public Use
  Company Number: FR-ALLERGAN-1670606US

PATIENT
  Age: 88 Year
  Sex: Male

DRUGS (9)
  1. CEFTAROLINE FOSAMIL UNK [Suspect]
     Active Substance: CEFTAROLINE FOSAMIL
     Indication: PSOAS ABSCESS
     Dosage: 600 MG, BID
     Route: 042
     Dates: start: 20140321, end: 20140402
  2. AERIUS [Concomitant]
     Active Substance: DESLORATADINE
     Indication: PRODUCT USED FOR UNKNOWN INDICATION
  3. BENAZEPRIL [Concomitant]
     Active Substance: BENAZEPRIL HYDROCHLORIDE
     Indication: PRODUCT USED FOR UNKNOWN INDICATION
  4. FOSFOCINE [Suspect]
     Active Substance: FOSFOMYCIN
     Indication: PSOAS ABSCESS
     Dosage: 4 G, QD
     Dates: start: 20140321, end: 20140331
  5. FINASTERIDE. [Concomitant]
     Active Substance: FINASTERIDE
     Indication: PRODUCT USED FOR UNKNOWN INDICATION
  6. ESOMEPRAZOLE [Concomitant]
     Active Substance: ESOMEPRAZOLE
     Indication: PRODUCT USED FOR UNKNOWN INDICATION
  7. PRESTOLE [Concomitant]
     Indication: PRODUCT USED FOR UNKNOWN INDICATION
  8. DOLIPRANE [Concomitant]
     Active Substance: ACETAMINOPHEN
     Indication: PRODUCT USED FOR UNKNOWN INDICATION
  9. FLIXOVATE [Concomitant]
     Active Substance: FLUTICASONE PROPIONATE
     Indication: PRODUCT USED FOR UNKNOWN INDICATION

REACTIONS (8)
  - Toxicity to various agents [None]
  - Cardiac failure congestive [Unknown]
  - Somnolence [Unknown]
  - Hypernatraemia [Unknown]
  - Blood creatinine increased [Unknown]
  - Acute pulmonary oedema [Unknown]
  - Overdose [None]
  - Electroencephalogram abnormal [Unknown]

NARRATIVE: CASE EVENT DATE: 201403
